FAERS Safety Report 6004511 (Version 2)
Quarter: 2012Q4

REPORT INFORMATION
  Report Type: Report from Study
  Country: GB (occurrence: ZW)
  Receive Date: 20060314
  Receipt Date: 20121005
  Transmission Date: 20130627
  Serious: Yes (Death, Hospitalization, Disabling)
  Sender: FDA-Public Use
  Company Number: ZW-GILEAD-2005-0008336

PATIENT
  Age: 36 Year
  Sex: Male

DRUGS (2)
  1. TENOFOVIR DISOPROXIL FUMARATE [Suspect]
     Indication: HIV INFECTION
     Dosage: UNK
     Dates: start: 20031114, end: 20031128
  2. COMBIVIR [Suspect]
     Indication: HIV INFECTION
     Dates: start: 20031114, end: 20031128

REACTIONS (1)
  - Renal failure [Fatal]
